FAERS Safety Report 4698104-1 (Version None)
Quarter: 2005Q2

REPORT INFORMATION
  Report Type: 
  Country: None (occurrence: None)
  Receive Date: 20050621
  Receipt Date: 20050608
  Transmission Date: 20051028
  Serious: Yes (Hospitalization)
  Sender: FDA-Public Use
  Company Number: 2005086249

PATIENT
  Age: 73 Year
  Sex: Male

DRUGS (10)
  1. IRINOTECAN HCL [Suspect]
     Indication: SMALL CELL LUNG CANCER STAGE UNSPECIFIED
  2. ETOPOSIDE [Suspect]
     Indication: SMALL CELL LUNG CANCER STAGE UNSPECIFIED
     Dosage: INTRAVENOUS
     Route: 042
  3. CISPLATIN [Suspect]
     Indication: SMALL CELL LUNG CANCER STAGE UNSPECIFIED
     Dosage: INTRAVENOUS
     Route: 042
  4. HYCAMTIN [Suspect]
     Indication: SMALL CELL LUNG CANCER STAGE UNSPECIFIED
     Dosage: 1.1 MG (DAILY), INTRAVENOUS
     Route: 042
     Dates: start: 20031014, end: 20031017
  5. MAGNESIUM OXIDE (MAGNESIUM OXIDE) [Concomitant]
  6. DISOPYRAMIDE [Concomitant]
  7. VERAPAMIL HYDROCHLORIDE [Concomitant]
  8. DIGOXIN [Concomitant]
  9. PREDNISOLONE [Concomitant]
  10. GRAN (FILGRASTIM) [Concomitant]

REACTIONS (4)
  - ANAEMIA [None]
  - BLOOD LACTATE DEHYDROGENASE DECREASED [None]
  - LEUKOPENIA [None]
  - LYMPHOCYTE COUNT DECREASED [None]
